FAERS Safety Report 8344185 (Version 2)
Quarter: 2013Q2

REPORT INFORMATION
  Report Type: Spontaneous
  Country: US (occurrence: US)
  Receive Date: 20120119
  Receipt Date: 20130610
  Transmission Date: 20140414
  Serious: Yes (Hospitalization)
  Sender: FDA-Public Use
  Company Number: US-B.I. PHARMACEUTICALS,INC./RIDGEFIELD-2012-BP-00809BP

PATIENT
  Age: 80 Year
  Sex: Female

DRUGS (9)
  1. PRADAXA [Suspect]
     Indication: ATRIAL FIBRILLATION
     Dosage: 150 MG
     Route: 048
     Dates: end: 201201
  2. PRADAXA [Suspect]
     Dosage: 300 MG
     Route: 048
  3. ASPIRIN [Concomitant]
     Dosage: 81 MG
  4. CELECOXIB [Concomitant]
  5. DILTIAZEM ER [Concomitant]
  6. HCTZ [Concomitant]
  7. LISINOPRIL [Concomitant]
  8. METAXALONE [Concomitant]
  9. VYTORIN [Concomitant]

REACTIONS (3)
  - Cerebral haemorrhage [Not Recovered/Not Resolved]
  - Cerebral haemorrhage [Recovered/Resolved]
  - Subarachnoid haemorrhage [Recovered/Resolved]
